FAERS Safety Report 6972310-5 (Version None)
Quarter: 2010Q3

REPORT INFORMATION
  Report Type: 
  Country: None (occurrence: None)
  Receive Date: 20100909
  Receipt Date: 20100901
  Transmission Date: 20110219
  Serious: Yes (Hospitalization)
  Sender: FDA-Public Use
  Company Number: PHHY2010CN56178

PATIENT
  Age: 56 Year
  Sex: Female

DRUGS (3)
  1. SEBIVO [Suspect]
     Indication: HEPATITIS B
     Dosage: 600 MG, QD
     Route: 048
     Dates: start: 20080201, end: 20100825
  2. THREE WING NUT ROOT [Concomitant]
     Indication: HEPATITIS VIRUS-ASSOCIATED NEPHROPATHY
     Dosage: UNK
     Dates: start: 20070101
  3. LIPITOR [Concomitant]
     Dosage: UNK

REACTIONS (5)
  - BLOOD CREATINE PHOSPHOKINASE INCREASED [None]
  - GAIT DISTURBANCE [None]
  - MYALGIA [None]
  - MYOGLOBIN BLOOD INCREASED [None]
  - PAIN IN EXTREMITY [None]
